FAERS Safety Report 20392847 (Version 2)
Quarter: 2023Q2

REPORT INFORMATION
  Report Type: Spontaneous
  Country: BR (occurrence: BR)
  Receive Date: 20220128
  Receipt Date: 20230517
  Transmission Date: 20230722
  Serious: Yes (Other)
  Sender: FDA-Public Use
  Company Number: BR-BIOMARINAP-BR-2022-141001

PATIENT

DRUGS (1)
  1. VIMIZIM [Suspect]
     Active Substance: ELOSULFASE ALFA
     Indication: Mucopolysaccharidosis IV
     Dosage: UNK, QW
     Route: 042

REACTIONS (5)
  - Bone deformity [Unknown]
  - Spinal deformity [Unknown]
  - Gait disturbance [Unknown]
  - Spinal pain [Unknown]
  - Arthralgia [Unknown]
